FAERS Safety Report 21771219 (Version 1)
Quarter: 2022Q4

REPORT INFORMATION
  Report Type: Spontaneous
  Country: US (occurrence: US)
  Receive Date: 20221223
  Receipt Date: 20221223
  Transmission Date: 20230112
  Serious: No
  Sender: FDA-Public Use
  Company Number: US-UNITED THERAPEUTICS-UNT-2022-031127

PATIENT
  Age: 55 Year
  Sex: Female
  Weight: 63.492 kg

DRUGS (6)
  1. REMODULIN [Suspect]
     Active Substance: TREPROSTINIL
     Indication: Pulmonary arterial hypertension
     Dosage: 0.006 ?G/KG, CONTINUING (PHARMACY FILLED WITH 3ML PER CASSETTE; PUMP RATE 24 MCL PER HOUR)
     Route: 058
     Dates: start: 202212
  2. REMODULIN [Suspect]
     Active Substance: TREPROSTINIL
     Dosage: UNK, CONTINUING
     Route: 058
     Dates: start: 20221209
  3. REMODULIN [Suspect]
     Active Substance: TREPROSTINIL
     Indication: Pulmonary arterial hypertension
     Dosage: 0.012 ?G/KG, CONTINUING (PHARMACY PRE-FILLED WITH 3ML PER CASSETTE; PUMP RATE 19 MCL PER HOUR)
     Route: 058
     Dates: start: 202212
  4. ORENITRAM [Suspect]
     Active Substance: TREPROSTINIL
     Indication: Product used for unknown indication
     Dosage: UNK, CONTINUING
     Route: 065
     Dates: end: 202212
  5. ADEMPAS [Concomitant]
     Active Substance: RIOCIGUAT
     Indication: Product used for unknown indication
     Dosage: UNK
     Route: 065
  6. AMBRISENTAN [Concomitant]
     Active Substance: AMBRISENTAN
     Indication: Product used for unknown indication
     Dosage: UNK
     Route: 065

REACTIONS (5)
  - Abdominal discomfort [Unknown]
  - Decreased appetite [Recovered/Resolved]
  - Infusion site pain [Unknown]
  - Device issue [Unknown]
  - Device wireless communication issue [Unknown]

NARRATIVE: CASE EVENT DATE: 20221201
